FAERS Safety Report 6967749-8 (Version None)
Quarter: 2010Q3

REPORT INFORMATION
  Report Type: 
  Country: None (occurrence: None)
  Receive Date: 20100907
  Receipt Date: 20100831
  Transmission Date: 20110219
  Serious: Yes (Other)
  Sender: FDA-Public Use
  Company Number: TH-PFIZER INC-2010108666

PATIENT
  Age: 55 Year
  Sex: Male

DRUGS (1)
  1. SUTENT [Suspect]
     Indication: RENAL CELL CARCINOMA
     Dosage: 12.5 MG, 4X/DAY, 4 WEEKS ON AND 2 WEEKS OFF
     Route: 048
     Dates: start: 20100201

REACTIONS (2)
  - SKIN EXFOLIATION [None]
  - YELLOW SKIN [None]
